FAERS Safety Report 6590873-9 (Version None)
Quarter: 2010Q1

REPORT INFORMATION
  Report Type: 
  Country: None (occurrence: None)
  Receive Date: 20100219
  Receipt Date: 20100211
  Transmission Date: 20100710
  Serious: Yes (Hospitalization)
  Sender: FDA-Public Use
  Company Number: US-MERCK-0808USA04594

PATIENT
  Age: 80 Year
  Sex: Female

DRUGS (2)
  1. FOSAMAX [Suspect]
     Indication: OSTEOPOROSIS
     Route: 048
     Dates: start: 20041210, end: 20070915
  2. VERAPAMIL [Concomitant]
     Route: 065
     Dates: start: 19900101

REACTIONS (6)
  - IMPAIRED HEALING [None]
  - INCORRECT ROUTE OF DRUG ADMINISTRATION [None]
  - ORAL INFECTION [None]
  - OSTEITIS [None]
  - OSTEONECROSIS [None]
  - PAIN [None]
